FAERS Safety Report 5332671-X (Version None)
Quarter: 2007Q2

REPORT INFORMATION
  Report Type: 
  Country: None (occurrence: None)
  Receive Date: 20070521
  Receipt Date: 20070508
  Transmission Date: 20071010
  Serious: Yes (Other)
  Sender: FDA-Public Use
  Company Number: 2006P1000568

PATIENT
  Age: 34 Year
  Sex: Female

DRUGS (11)
  1. NICARDIPINE HYDROCHLORIDE [Suspect]
     Indication: HYPERTENSION
     Dosage: ; PO
     Route: 048
  2. TACROLIMUS [Suspect]
     Indication: DRUG USE FOR UNKNOWN INDICATION
     Dosage: 5 MG; QD, 10 MG, QD
     Dates: start: 20021215
  3. TACROLIMUS [Suspect]
     Indication: DRUG USE FOR UNKNOWN INDICATION
     Dosage: 5 MG; QD, 10 MG, QD
     Dates: start: 20021215
  4. SIROLIMUS (SIROLIMUS) [Suspect]
     Indication: PROPHYLAXIS AGAINST TRANSPLANT REJECTION
     Dosage: 4 MG; QD; PO, 1 MG; QD; PO
     Route: 048
     Dates: start: 20021215
  5. SIROLIMUS (SIROLIMUS) [Suspect]
     Indication: PROPHYLAXIS AGAINST TRANSPLANT REJECTION
     Dosage: 4 MG; QD; PO, 1 MG; QD; PO
     Route: 048
     Dates: start: 20030421
  6. FUMAFER [Concomitant]
  7. FUNGIZONE [Concomitant]
  8. IRBESARTAN [Concomitant]
  9. TENORMIN [Concomitant]
  10. SOLUPRED [Concomitant]
  11. OMEPRAZOLE [Concomitant]

REACTIONS (9)
  - ASTHENIA [None]
  - COUGH [None]
  - DISEASE PROGRESSION [None]
  - DRUG INTERACTION [None]
  - EAR, NOSE AND THROAT EXAMINATION ABNORMAL [None]
  - IMMUNOSUPPRESSANT DRUG LEVEL INCREASED [None]
  - LUNG DISORDER [None]
  - MYALGIA [None]
  - TACHYPNOEA [None]
